FAERS Safety Report 24456438 (Version 2)
Quarter: 2024Q4

REPORT INFORMATION
  Report Type: Report from Study
  Country: CA (occurrence: CA)
  Receive Date: 20241017
  Receipt Date: 20241018
  Transmission Date: 20250115
  Serious: No
  Sender: ROCHE
  Company Number: CA-ROCHE-3511746

PATIENT
  Sex: Female

DRUGS (17)
  1. RITUXAN [Suspect]
     Active Substance: RITUXIMAB
     Indication: Rheumatoid arthritis
     Dosage: MOREDOSAGEINFO IS DAY 1,15
     Route: 041
     Dates: start: 20070807, end: 20221207
  2. RUXIENCE [Suspect]
     Active Substance: RITUXIMAB-PVVR
     Indication: Product used for unknown indication
     Route: 065
  3. ACETAMINOPHEN [Concomitant]
     Active Substance: ACETAMINOPHEN
     Route: 048
     Dates: start: 20091104, end: 20120209
  4. ACETAMINOPHEN [Concomitant]
     Active Substance: ACETAMINOPHEN
     Route: 048
     Dates: start: 20120209
  5. CELEBREX [Concomitant]
     Active Substance: CELECOXIB
  6. CORTISONE [Concomitant]
     Active Substance: CORTISONE
  7. DIPHENHYDRAMINE HYDROCHLORIDE [Concomitant]
     Active Substance: DIPHENHYDRAMINE HYDROCHLORIDE
     Route: 048
  8. DULOXETINE [Concomitant]
     Active Substance: DULOXETINE
     Indication: Back pain
     Dates: start: 202108
  9. FOLIC ACID [Concomitant]
     Active Substance: FOLIC ACID
  10. METHOTREXATE [Concomitant]
     Active Substance: METHOTREXATE
  11. METHYLPREDNISOLONE [Concomitant]
     Active Substance: METHYLPREDNISOLONE
     Route: 042
     Dates: start: 20091104
  12. PANTOPRAZOLE [Concomitant]
     Active Substance: PANTOPRAZOLE
  13. PAXLOVID [Concomitant]
     Active Substance: NIRMATRELVIR\RITONAVIR
  14. PREDNISONE [Concomitant]
     Active Substance: PREDNISONE
  15. PROLIA [Concomitant]
     Active Substance: DENOSUMAB
     Dates: start: 2022
  16. VITAMIN D NOS [Concomitant]
     Active Substance: CHOLECALCIFEROL\ERGOCALCIFEROL
  17. SIMPONI [Concomitant]
     Active Substance: GOLIMUMAB

REACTIONS (3)
  - Gastrooesophageal reflux disease [Unknown]
  - Drug ineffective [Unknown]
  - Drug hypersensitivity [Unknown]
